FAERS Safety Report 12964603 (Version 1)
Quarter: 2016Q4

REPORT INFORMATION
  Report Type: Spontaneous
  Country: FR (occurrence: FR)
  Receive Date: 20161122
  Receipt Date: 20161122
  Transmission Date: 20170207
  Serious: Yes (Hospitalization)
  Sender: FDA-Public Use
  Company Number: FR-ASTRAZENECA-2016SF23563

PATIENT
  Age: 14169 Day
  Sex: Male

DRUGS (9)
  1. PIPERACILLIN AND TAZOBACTAM [Suspect]
     Active Substance: PIPERACILLIN SODIUM\TAZOBACTAM SODIUM
     Indication: STREPTOCOCCAL ENDOCARDITIS
     Dosage: 4G TID
     Route: 042
     Dates: start: 20160911
  2. PARACETAMOL [Suspect]
     Active Substance: ACETAMINOPHEN
     Indication: ANALGESIC THERAPY
     Dosage: 4G/D
     Route: 042
     Dates: start: 20160907, end: 20160915
  3. INEXIUM [Suspect]
     Active Substance: ESOMEPRAZOLE
     Dosage: 40 MG SIX TIMES PER DAY
     Route: 042
     Dates: start: 20160907, end: 20160915
  4. ZAMUDOL SR [Suspect]
     Active Substance: TRAMADOL HYDROCHLORIDE
     Indication: ANALGESIC THERAPY
     Dosage: 200 MG/D
     Route: 048
     Dates: start: 20160907
  5. ALPRAZOLAM. [Suspect]
     Active Substance: ALPRAZOLAM
     Dosage: 0,25 MG/D
     Route: 065
     Dates: start: 20160907
  6. FUROSEMIDE. [Suspect]
     Active Substance: FUROSEMIDE
     Dosage: 0 MG BID
     Route: 065
     Dates: start: 20160907
  7. AMOXICILLINE [Suspect]
     Active Substance: AMOXICILLIN
     Indication: STREPTOCOCCAL ENDOCARDITIS
     Dosage: 2G SIX TIMES PER DAY
     Route: 042
     Dates: start: 20160907, end: 20160911
  8. GENTAMICINE PANPHARMA [Suspect]
     Active Substance: GENTAMICIN
     Indication: STREPTOCOCCAL ENDOCARDITIS
     Dosage: 225 MG/D
     Route: 042
     Dates: start: 20160907, end: 20160923
  9. KARDEGIC [Suspect]
     Active Substance: ASPIRIN LYSINE
     Dosage: 75 MG
     Route: 048
     Dates: start: 20160907

REACTIONS (2)
  - Cholestasis [Not Recovered/Not Resolved]
  - Hepatic enzyme increased [Not Recovered/Not Resolved]

NARRATIVE: CASE EVENT DATE: 20160907
